FAERS Safety Report 9247316 (Version 2)
Quarter: 2013Q2

REPORT INFORMATION
  Report Type: Spontaneous
  Country: SE (occurrence: SE)
  Receive Date: 20130423
  Receipt Date: 20130513
  Transmission Date: 20140414
  Serious: Yes (Hospitalization)
  Sender: FDA-Public Use
  Company Number: SE-JNJFOC-20130408789

PATIENT
  Age: 67 Year
  Sex: Male

DRUGS (2)
  1. REMICADE [Suspect]
     Indication: RHEUMATOID ARTHRITIS
     Dosage: FOR 11 YEARS
     Route: 042
     Dates: start: 20011205, end: 20120912
  2. METHOTREXATE [Concomitant]
     Route: 065
     Dates: start: 20011205

REACTIONS (1)
  - Atrial fibrillation [Unknown]
